FAERS Safety Report 14896241 (Version 1)
Quarter: 2018Q2

REPORT INFORMATION
  Report Type: Spontaneous
  Country: DE (occurrence: DE)
  Receive Date: 20180515
  Receipt Date: 20180515
  Transmission Date: 20180711
  Serious: Yes (Death, Other)
  Sender: FDA-Public Use
  Company Number: DE-ASTRAZENECA-2018SE61297

PATIENT
  Age: 54 Year
  Sex: Female

DRUGS (11)
  1. ZOMETA [Suspect]
     Active Substance: ZOLEDRONIC ACID
     Dosage: UNK, CYCLIC (EVERY 8 WEEKS)
     Route: 065
  2. PACLITAXEL. [Suspect]
     Active Substance: PACLITAXEL
     Indication: PRODUCT USED FOR UNKNOWN INDICATION
     Dosage: UNK, ONCE A WEEK
     Route: 065
     Dates: start: 201609, end: 201612
  3. EXEMESTANE. [Suspect]
     Active Substance: EXEMESTANE
     Dosage: UNK
     Route: 065
     Dates: start: 20171026
  4. PALBOCICLIB [Suspect]
     Active Substance: PALBOCICLIB
     Dosage: 7TH CYCLE
     Route: 065
     Dates: start: 20170623
  5. PALBOCICLIB [Suspect]
     Active Substance: PALBOCICLIB
     Dosage: 8TH CYCLE
     Route: 065
     Dates: start: 20170721
  6. FASLODEX [Suspect]
     Active Substance: FULVESTRANT
     Indication: PRODUCT USED FOR UNKNOWN INDICATION
     Dosage: 75.0MG UNKNOWN
     Route: 030
     Dates: start: 20170623
  7. ZOMETA [Suspect]
     Active Substance: ZOLEDRONIC ACID
     Indication: PRODUCT USED FOR UNKNOWN INDICATION
     Dosage: UNK, CYCLIC (EVERY 8 WEEKS)
     Route: 065
     Dates: start: 201609, end: 201612
  8. EXEMESTANE. [Suspect]
     Active Substance: EXEMESTANE
     Indication: PRODUCT USED FOR UNKNOWN INDICATION
     Dosage: UNK
     Route: 065
     Dates: start: 20171010
  9. PALBOCICLIB [Suspect]
     Active Substance: PALBOCICLIB
     Dosage: 75 MG, (3RD CYCLE)
     Route: 065
  10. PALBOCICLIB [Suspect]
     Active Substance: PALBOCICLIB
     Indication: PRODUCT USED FOR UNKNOWN INDICATION
     Dosage: 1ST CYCLE
     Route: 065
  11. PALBOCICLIB [Suspect]
     Active Substance: PALBOCICLIB
     Dosage: 100 MG, QD (2ND CYCLE)
     Route: 065

REACTIONS (12)
  - Anaemia [Fatal]
  - Metastases to bone [Fatal]
  - Cachexia [Fatal]
  - Haemoglobin decreased [Fatal]
  - Metastases to liver [Fatal]
  - Metastases to lung [Fatal]
  - Death [Fatal]
  - Inappropriate schedule of drug administration [Fatal]
  - Leukopenia [Fatal]
  - Back pain [Fatal]
  - Lumbar vertebral fracture [Fatal]
  - Fatigue [Fatal]

NARRATIVE: CASE EVENT DATE: 20170815
